FAERS Safety Report 13716208 (Version 1)
Quarter: 2017Q3

REPORT INFORMATION
  Report Type: Spontaneous
  Country: BR (occurrence: BR)
  Receive Date: 20170705
  Receipt Date: 20170705
  Transmission Date: 20171127
  Serious: Yes (Other)
  Sender: FDA-Public Use
  Company Number: BR-PFIZER INC-2013140877

PATIENT
  Age: 71 Year
  Sex: Female
  Weight: 80 kg

DRUGS (2)
  1. LIPITOR [Suspect]
     Active Substance: ATORVASTATIN CALCIUM
     Indication: BLOOD CHOLESTEROL INCREASED
     Dosage: 10 MG, 1X/DAY
     Route: 048
     Dates: start: 20110227
  2. LIPITOR [Suspect]
     Active Substance: ATORVASTATIN CALCIUM
     Dosage: 1 DF, 1X/DAY
     Route: 048

REACTIONS (5)
  - Ear pain [Not Recovered/Not Resolved]
  - Influenza [Recovered/Resolved]
  - Pharyngeal inflammation [Unknown]
  - Ear infection [Unknown]
  - Ocular vascular disorder [Not Recovered/Not Resolved]

NARRATIVE: CASE EVENT DATE: 20130501
